FAERS Safety Report 13457031 (Version 3)
Quarter: 2017Q3

REPORT INFORMATION
  Report Type: Report from Study
  Country: FR (occurrence: FR)
  Receive Date: 20170419
  Receipt Date: 20170803
  Transmission Date: 20171127
  Serious: Yes (Hospitalization)
  Sender: FDA-Public Use
  Company Number: FR-PFIZER INC-2017166769

PATIENT
  Age: 21 Year
  Sex: Female
  Weight: 79 kg

DRUGS (2)
  1. MISOPROSTOL. [Suspect]
     Active Substance: MISOPROSTOL
     Indication: ABORTION INDUCED
     Dosage: 400 UG, SINGLE (TOTAL)
     Route: 048
     Dates: start: 19930128, end: 19930128
  2. MIFEGYNE [Suspect]
     Active Substance: MIFEPRISTONE
     Indication: ABORTION INDUCED
     Dosage: 600 MG, SINGLE (TOTAL)
     Route: 048
     Dates: start: 19930126, end: 19930126

REACTIONS (4)
  - Uterine haemorrhage [Recovered/Resolved]
  - Haemorrhagic anaemia [Unknown]
  - Malaise [Recovered/Resolved]
  - Drug ineffective [Unknown]

NARRATIVE: CASE EVENT DATE: 19930128
